FAERS Safety Report 4874297-8 (Version None)
Quarter: 2006Q1

REPORT INFORMATION
  Report Type: 
  Country: None (occurrence: None)
  Receive Date: 20060106
  Receipt Date: 20050818
  Transmission Date: 20060701
  Serious: Yes (Hospitalization, Disabling)
  Sender: FDA-Public Use
  Company Number: US-MERCK-0508USA03302

PATIENT
  Age: 34 Year
  Sex: Male
  Weight: 82 kg

DRUGS (2)
  1. VIOXX [Suspect]
     Indication: INFLAMMATION
     Route: 048
     Dates: start: 20030910, end: 20040201
  2. VIOXX [Suspect]
     Indication: LIMB INJURY
     Route: 048
     Dates: start: 20030910, end: 20040201

REACTIONS (5)
  - ARTERIOVENOUS MALFORMATION [None]
  - CEREBROVASCULAR ACCIDENT [None]
  - DEPRESSION [None]
  - EMBOLISM [None]
  - LIMB INJURY [None]
